FAERS Safety Report 23633287 (Version 2)
Quarter: 2024Q4

REPORT INFORMATION
  Report Type: Spontaneous
  Country: US (occurrence: US)
  Receive Date: 20240314
  Receipt Date: 20241209
  Transmission Date: 20250114
  Serious: Yes (Hospitalization, Other)
  Sender: PFIZER
  Company Number: US-PFIZER INC-PV202400033346

PATIENT
  Age: 48 Year
  Sex: Female

DRUGS (1)
  1. PAXLOVID [Suspect]
     Active Substance: NIRMATRELVIR\RITONAVIR
     Indication: COVID-19 treatment
     Dosage: UNK

REACTIONS (3)
  - Pneumonia [Unknown]
  - Ovarian cyst [Unknown]
  - Ovarian haemorrhage [Unknown]

NARRATIVE: CASE EVENT DATE: 20240101
